FAERS Safety Report 9827617 (Version 1)
Quarter: 2014Q1

REPORT INFORMATION
  Report Type: Spontaneous
  Country: FR (occurrence: FR)
  Receive Date: 20140117
  Receipt Date: 20140117
  Transmission Date: 20141002
  Serious: Yes (Hospitalization, Other)
  Sender: FDA-Public Use
  Company Number: FR-PFIZER INC-2014012854

PATIENT
  Age: 82 Year
  Sex: Female

DRUGS (4)
  1. CORDARONE [Suspect]
     Dosage: UNK
     Route: 048
  2. PRADAXA [Interacting]
     Dosage: 220 MG, DAILY
     Route: 048
     Dates: start: 201303, end: 201309
  3. KERLONE [Concomitant]
     Dosage: UNK
  4. NUCTALON [Concomitant]
     Dosage: UNK

REACTIONS (8)
  - Drug interaction [Recovered/Resolved]
  - Anaemia [Recovered/Resolved]
  - Haematemesis [Unknown]
  - Hepatic enzyme increased [Recovered/Resolved]
  - Dysphagia [Unknown]
  - Polyp [Unknown]
  - Back pain [Unknown]
  - Kidney enlargement [Unknown]
